FAERS Safety Report 9016511 (Version 1)
Quarter: 2013Q1

REPORT INFORMATION
  Report Type: Spontaneous
  Country: US (occurrence: US)
  Receive Date: 20130116
  Receipt Date: 20130116
  Transmission Date: 20140127
  Serious: No
  Sender: FDA-Public Use
  Company Number: US-PFIZER INC-2013020076

PATIENT
  Age: 56 Year
  Sex: Female
  Weight: 62.59 kg

DRUGS (1)
  1. CHANTIX [Suspect]
     Indication: SMOKING CESSATION THERAPY
     Dosage: UNK
     Dates: start: 2006

REACTIONS (4)
  - Insomnia [Not Recovered/Not Resolved]
  - Abnormal dreams [Recovered/Resolved]
  - Irritability [Recovered/Resolved]
  - Dry mouth [Recovered/Resolved]
